FAERS Safety Report 10354461 (Version 3)
Quarter: 2014Q4

REPORT INFORMATION
  Report Type: Spontaneous
  Country: US (occurrence: US)
  Receive Date: 20140731
  Receipt Date: 20141003
  Transmission Date: 20150528
  Serious: No
  Sender: FDA-Public Use
  Company Number: US-PFIZER INC-2014209803

PATIENT
  Age: 69 Year
  Sex: Female
  Weight: 52.2 kg

DRUGS (3)
  1. PREMARIN [Suspect]
     Active Substance: ESTROGENS, CONJUGATED
     Indication: VULVOVAGINAL DRYNESS
     Dosage: 1.25 MG, THREE OR FOUR TIMES A WEEK
     Route: 067
  2. PREMARIN [Suspect]
     Active Substance: ESTROGENS, CONJUGATED
     Indication: HAIR GROWTH ABNORMAL
  3. PREMARIN [Suspect]
     Active Substance: ESTROGENS, CONJUGATED
     Indication: HORMONE LEVEL ABNORMAL

REACTIONS (3)
  - Feeling abnormal [Unknown]
  - Vulvovaginal pain [Unknown]
  - Wrong technique in drug usage process [Unknown]
